FAERS Safety Report 8024948-4 (Version None)
Quarter: 2012Q1

REPORT INFORMATION
  Report Type: 
  Country: None (occurrence: None)
  Receive Date: 20120105
  Receipt Date: 20111227
  Transmission Date: 20120608
  Serious: Yes (Hospitalization, Other)
  Sender: FDA-Public Use
  Company Number: PHHY2011FR113496

PATIENT
  Sex: Female

DRUGS (11)
  1. DEMECLOCYCLINE HCL [Suspect]
     Dosage: 600 MG, DAILY
     Dates: start: 20111108
  2. VALPROIC ACID [Concomitant]
  3. LORAZEPAM [Concomitant]
  4. ENOXAPARIN [Concomitant]
  5. FORMOTEROL FUMARATE [Suspect]
     Dosage: UNK
     Dates: start: 20111122, end: 20111201
  6. PAMIDRONATE DISODIUM [Suspect]
     Route: 042
     Dates: start: 20111108
  7. PLAVIX [Concomitant]
  8. SPECIAFOLDINE [Concomitant]
  9. MOVIPREP [Suspect]
     Dosage: UNK
     Dates: start: 20111109, end: 20111201
  10. CETIRIZINE [Suspect]
     Dosage: UNK
     Dates: end: 20111201
  11. ESOMEPRAZOLE SODIUM [Concomitant]

REACTIONS (15)
  - CONJUNCTIVITIS [None]
  - VITAMIN B2 INCREASED [None]
  - RALES [None]
  - STEVENS-JOHNSON SYNDROME [None]
  - HAEMOGLOBIN DECREASED [None]
  - RASH MACULO-PAPULAR [None]
  - SKIN EXFOLIATION [None]
  - ORAL MUCOSAL ERUPTION [None]
  - STAPHYLOCOCCAL INFECTION [None]
  - DISORIENTATION [None]
  - ERYTHEMA [None]
  - ENANTHEMA [None]
  - OEDEMA PERIPHERAL [None]
  - PYREXIA [None]
  - NIKOLSKY'S SIGN [None]
